FAERS Safety Report 6622790-X (Version None)
Quarter: 2010Q1

REPORT INFORMATION
  Report Type: 
  Country: None (occurrence: None)
  Receive Date: 20100310
  Receipt Date: 20091210
  Transmission Date: 20100710
  Serious: Yes (Hospitalization)
  Sender: FDA-Public Use
  Company Number: JP-JNJFOC-20091006348

PATIENT
  Sex: Female

DRUGS (7)
  1. DORIPENEM MONOHYDRATE [Suspect]
     Indication: POSTOPERATIVE FEVER
     Route: 041
     Dates: start: 20091010, end: 20091014
  2. FLUMARIN [Suspect]
     Indication: POSTOPERATIVE FEVER
     Route: 041
  3. HYALURONATE [Suspect]
     Indication: POSTOPERATIVE ADHESION
     Route: 061
  4. VANCOMYCIN [Suspect]
     Indication: POSTOPERATIVE FEVER
     Route: 048
  5. CEFMETAZOLE SODIUM [Concomitant]
     Indication: PYREXIA
  6. BIOFERMIN [Concomitant]
     Route: 048
  7. CODEINE SULFATE [Concomitant]
     Dosage: START DATE: 26-SEP-2009

REACTIONS (2)
  - HEPATIC FUNCTION ABNORMAL [None]
  - PYREXIA [None]
